FAERS Safety Report 26133747 (Version 1)
Quarter: 2025Q4

REPORT INFORMATION
  Report Type: Spontaneous
  Country: GB (occurrence: GB)
  Receive Date: 20251209
  Receipt Date: 20251209
  Transmission Date: 20260118
  Serious: Yes (Life-Threatening, Hospitalization, Other)
  Sender: ASCENT PHARMACEUTICALS INC
  Company Number: GB-ASCENT-2025ASLIT00267

PATIENT
  Age: 50 Year

DRUGS (10)
  1. PALIPERIDONE [Suspect]
     Active Substance: PALIPERIDONE
     Indication: Schizophrenia
     Route: 030
  2. PALIPERIDONE [Suspect]
     Active Substance: PALIPERIDONE
     Dosage: TWO DOSES THREE MONTHS APART
     Route: 030
  3. FUROSEMIDE [Concomitant]
     Active Substance: FUROSEMIDE
     Indication: Product used for unknown indication
     Route: 042
  4. ASPIRIN [Concomitant]
     Active Substance: ASPIRIN
     Indication: Product used for unknown indication
     Route: 065
  5. ATORVASTATIN [Concomitant]
     Active Substance: ATORVASTATIN
     Indication: Product used for unknown indication
     Route: 065
  6. HYDRALAZINE [Concomitant]
     Active Substance: HYDRALAZINE HYDROCHLORIDE
     Indication: Product used for unknown indication
     Route: 065
  7. TICAGRELOR [Concomitant]
     Active Substance: TICAGRELOR
     Indication: Product used for unknown indication
     Route: 065
  8. INSULIN GLARGINE [Concomitant]
     Active Substance: INSULIN GLARGINE
     Indication: Product used for unknown indication
     Route: 065
  9. PROCYCLIDINE [Concomitant]
     Active Substance: PROCYCLIDINE
     Indication: Product used for unknown indication
     Route: 065
  10. Drbepoetin [Concomitant]
     Indication: Product used for unknown indication
     Route: 065

REACTIONS (11)
  - Autonomic failure syndrome [Unknown]
  - Hypothermia [Unknown]
  - Loss of consciousness [Unknown]
  - Respiratory failure [Unknown]
  - Hypotension [Unknown]
  - Toxicity to various agents [Unknown]
  - Electrocardiogram QT prolonged [Unknown]
  - Renal failure [Unknown]
  - Bradycardia [Unknown]
  - Sedation [Unknown]
  - Dysphagia [Unknown]
